FAERS Safety Report 10051109 (Version 2)
Quarter: 2014Q2

REPORT INFORMATION
  Report Type: Spontaneous
  Country: US (occurrence: US)
  Receive Date: 20140401
  Receipt Date: 20140401
  Transmission Date: 20141212
  Serious: No
  Sender: FDA-Public Use
  Company Number: US-ASTRAZENECA-2005UW10719

PATIENT
  Age: 87 Year
  Sex: Female
  Weight: 65.8 kg

DRUGS (9)
  1. NEXIUM [Suspect]
     Indication: GASTROOESOPHAGEAL REFLUX DISEASE
     Route: 048
  2. NEXIUM [Suspect]
     Indication: DYSPEPSIA
     Route: 048
  3. NEXIUM [Suspect]
     Indication: GASTROOESOPHAGEAL REFLUX DISEASE
     Route: 048
     Dates: start: 2008
  4. NEXIUM [Suspect]
     Indication: DYSPEPSIA
     Route: 048
     Dates: start: 2008
  5. NEXIUM [Suspect]
     Indication: GASTROOESOPHAGEAL REFLUX DISEASE
     Route: 048
  6. NEXIUM [Suspect]
     Indication: DYSPEPSIA
     Route: 048
  7. COZAAR [Concomitant]
  8. MULTIVITAMINS [Concomitant]
  9. TUMS [Concomitant]
     Indication: DYSPEPSIA

REACTIONS (3)
  - Blood iron decreased [Unknown]
  - Dyspepsia [Unknown]
  - Drug dose omission [Unknown]
